FAERS Safety Report 8439051-9 (Version None)
Quarter: 2012Q2

REPORT INFORMATION
  Report Type: 
  Country: None (occurrence: None)
  Receive Date: 20120615
  Receipt Date: 20120611
  Transmission Date: 20120825
  Serious: Yes (Other)
  Sender: FDA-Public Use
  Company Number: US-JNJFOC-20120603744

PATIENT

DRUGS (22)
  1. CYCLOPHOSPHAMIDE [Suspect]
     Indication: B-CELL LYMPHOMA
     Route: 065
  2. PREDNISONE [Suspect]
     Route: 065
  3. DOXORUBICIN HCL [Suspect]
     Route: 042
  4. RITUXIMAB [Suspect]
     Indication: B-CELL LYMPHOMA
     Dosage: FIRST INFUSION ADMINISTERED AT 50 MG/HR; IN ABSENCE OF TOXICITY INCREASED BY 50 MG HR
     Route: 042
  5. VINCRISTINE SULFATE [Suspect]
     Route: 065
  6. PREDNISONE [Suspect]
     Indication: B-CELL LYMPHOMA
     Route: 065
  7. STEROIDS NOS [Concomitant]
     Indication: PREMEDICATION
     Route: 048
  8. ACETAMINOPHEN [Concomitant]
     Indication: PREMEDICATION
     Route: 065
  9. VINCRISTINE SULFATE [Suspect]
     Indication: DIFFUSE LARGE B-CELL LYMPHOMA
     Route: 065
  10. RITUXIMAB [Suspect]
     Indication: DIFFUSE LARGE B-CELL LYMPHOMA
     Dosage: FASTER INFUSION; 20% OVER 30 MIN AND 80% OVER 60 MINS.
     Route: 042
  11. VINCRISTINE SULFATE [Suspect]
     Route: 065
  12. PREDNISONE [Suspect]
     Indication: DIFFUSE LARGE B-CELL LYMPHOMA
     Route: 065
  13. DOXORUBICIN HCL [Suspect]
     Indication: DIFFUSE LARGE B-CELL LYMPHOMA
     Route: 042
  14. RITUXIMAB [Suspect]
     Dosage: FIRST INFUSION ADMINISTERED AT 50 MG/HR; IN ABSENCE OF TOXICITY INCREASED BY 50 MG HR
     Route: 042
  15. VINCRISTINE SULFATE [Suspect]
     Indication: B-CELL LYMPHOMA
     Route: 065
  16. PREDNISONE [Suspect]
     Route: 065
  17. DOXORUBICIN HCL [Suspect]
     Indication: B-CELL LYMPHOMA
     Route: 042
  18. DOXORUBICIN HCL [Suspect]
     Route: 042
  19. CYCLOPHOSPHAMIDE [Suspect]
     Indication: DIFFUSE LARGE B-CELL LYMPHOMA
     Route: 065
  20. CYCLOPHOSPHAMIDE [Suspect]
     Route: 065
  21. RITUXIMAB [Suspect]
     Dosage: FASTER INFUSION; 20% OVER 30 MIN AND 80% OVER 60 MINS.
     Route: 042
  22. CYCLOPHOSPHAMIDE [Suspect]
     Route: 065

REACTIONS (2)
  - ABDOMINAL PAIN [None]
  - INFUSION RELATED REACTION [None]
